FAERS Safety Report 20312948 (Version 1)
Quarter: 2022Q1

REPORT INFORMATION
  Report Type: Spontaneous
  Country: US (occurrence: US)
  Receive Date: 20220108
  Receipt Date: 20220108
  Transmission Date: 20220423
  Serious: Yes (Other)
  Sender: FDA-Public Use
  Company Number: US-PURDUE-USA-2020-0281012

PATIENT
  Sex: Male

DRUGS (2)
  1. OXYCODONE HYDROCHLORIDE [Suspect]
     Active Substance: OXYCODONE HYDROCHLORIDE
     Indication: Pain
     Dosage: 10 MG, UNKNOWN
     Route: 065
  2. HYDROCODONE BITARTRATE [Suspect]
     Active Substance: HYDROCODONE BITARTRATE
     Indication: Pain
     Dosage: 10-325, UNKNOWN
     Route: 065

REACTIONS (14)
  - Drug dependence [Unknown]
  - Therapeutic product ineffective [Unknown]
  - Fatigue [Unknown]
  - Hyperhidrosis [Unknown]
  - Temperature intolerance [Unknown]
  - Chills [Unknown]
  - Anxiety [Unknown]
  - Agitation [Unknown]
  - Oedema peripheral [Unknown]
  - Gait disturbance [Unknown]
  - Depression [Unknown]
  - Disturbance in attention [Unknown]
  - Sexual dysfunction [Unknown]
  - Drug withdrawal syndrome [Unknown]
